FAERS Safety Report 6201266-8 (Version None)
Quarter: 2009Q2

REPORT INFORMATION
  Report Type: 
  Country: None (occurrence: None)
  Receive Date: 20090521
  Receipt Date: 20090514
  Transmission Date: 20091009
  Serious: Yes (Other)
  Sender: FDA-Public Use
  Company Number: 2009SP010488

PATIENT
  Age: 6 Year
  Sex: Male

DRUGS (1)
  1. CLARITIN REDITABS [Suspect]
     Dosage: 10 MG; ONCE, PO
     Route: 048
     Dates: start: 20090513

REACTIONS (1)
  - LIP SWELLING [None]
